FAERS Safety Report 5222286-6 (Version None)
Quarter: 2007Q1

REPORT INFORMATION
  Report Type: 
  Country: None (occurrence: None)
  Receive Date: 20070129
  Receipt Date: 20070117
  Transmission Date: 20070707
  Serious: Yes (Death, Congenital Anomaly)
  Sender: FDA-Public Use
  Company Number: 2007SE00031

PATIENT
  Sex: Male

DRUGS (2)
  1. ATACAND [Suspect]
     Dosage: DRUG USED BY MOTHER FOR MIN. 6 MONTHS PRIOR TO PREGNANCY. FETUS EXPOSED THROUGH WHOLE PREGNANCY.
     Route: 064
     Dates: end: 20061226
  2. NORMORIX MITE [Concomitant]
     Dosage: DRUG USED BY MOTHER FOR MIN. 6 MONTHS PRIOR TO PREGNANCY. FETUS EXPOSED THROUGH WHOLE PREGNANCY.
     Route: 064
     Dates: end: 20061226

REACTIONS (3)
  - HEAD DEFORMITY [None]
  - PULMONARY HYPOPLASIA [None]
  - RENAL HYPERTROPHY [None]
